FAERS Safety Report 8222019-5 (Version None)
Quarter: 2012Q1

REPORT INFORMATION
  Report Type: 
  Country: None (occurrence: None)
  Receive Date: 20120315
  Receipt Date: 20120302
  Transmission Date: 20120608
  Serious: Yes (Death, Life-Threatening, Hospitalization, Other)
  Sender: FDA-Public Use
  Company Number: 2012MA002848

PATIENT
  Age: 67 Year
  Sex: Male

DRUGS (31)
  1. MILK OF MAGNESIUM [Concomitant]
  2. KLONOPIN [Concomitant]
  3. TOPROL-XL [Concomitant]
  4. COREG [Concomitant]
  5. VITAMIN B COMPLEX CAP [Concomitant]
  6. DIGOXIN [Suspect]
     Indication: PRODUCT USED FOR UNKNOWN INDICATION
     Dosage: 0.25MG;UNK;PO
     Route: 048
     Dates: start: 20060707, end: 20070814
  7. FUROSEMIDE [Concomitant]
  8. SINGULAIR [Concomitant]
  9. CELEXA [Concomitant]
  10. CLARITIN [Concomitant]
  11. LISINOPRIL [Concomitant]
  12. ASPIRIN [Concomitant]
  13. CEFTZIL [Concomitant]
  14. SOTALOL HCL [Concomitant]
  15. COUMADIN [Concomitant]
  16. REGLAN [Concomitant]
  17. HYDROCHLOROTHIAZIDE [Concomitant]
  18. POTASSIUM CHLORIDE [Concomitant]
  19. PREVACID [Concomitant]
  20. FENTANYL [Concomitant]
  21. LOVASTATIN [Concomitant]
  22. PHENOBARBITAL TAB [Concomitant]
  23. METAMUCIL-2 [Concomitant]
  24. MULTI-VITAMINS [Concomitant]
  25. ZANTAC [Concomitant]
  26. DILANTIN [Concomitant]
  27. ZOCOR [Concomitant]
  28. NEXIUM [Concomitant]
  29. NORCO [Concomitant]
  30. PACERONE [Concomitant]
  31. HYDROCODONE [Concomitant]

REACTIONS (49)
  - ATRIAL FIBRILLATION [None]
  - OSTEOARTHRITIS [None]
  - MYALGIA [None]
  - ATRIAL TACHYCARDIA [None]
  - PNEUMONITIS [None]
  - CONFUSIONAL STATE [None]
  - LETHARGY [None]
  - TREMOR [None]
  - CEREBRAL VENTRICLE DILATATION [None]
  - RIB FRACTURE [None]
  - CARDIAC ARREST [None]
  - ECONOMIC PROBLEM [None]
  - ISCHAEMIC CARDIOMYOPATHY [None]
  - MULTIPLE INJURIES [None]
  - ILL-DEFINED DISORDER [None]
  - HUMERUS FRACTURE [None]
  - LEFT VENTRICULAR DYSFUNCTION [None]
  - CARDIAC FAILURE CONGESTIVE [None]
  - HYPERTENSION [None]
  - ABDOMINAL PAIN UPPER [None]
  - CHRONIC OBSTRUCTIVE PULMONARY DISEASE [None]
  - HYPERCHOLESTEROLAEMIA [None]
  - DIARRHOEA [None]
  - DIVERTICULUM INTESTINAL [None]
  - DIVERTICULUM [None]
  - CARDIAC FAILURE [None]
  - CORONARY ARTERY DISEASE [None]
  - NECK PAIN [None]
  - GRAND MAL CONVULSION [None]
  - HYPOTENSION [None]
  - SKIN WARM [None]
  - ENCEPHALOPATHY [None]
  - HEADACHE [None]
  - MENTAL STATUS CHANGES [None]
  - PULMONARY HYPERTENSION [None]
  - PAIN [None]
  - SEPSIS [None]
  - CARDIO-RESPIRATORY ARREST [None]
  - BUNDLE BRANCH BLOCK LEFT [None]
  - CELLULITIS [None]
  - CONTUSION [None]
  - VENTRICULAR FIBRILLATION [None]
  - STATUS EPILEPTICUS [None]
  - PNEUMONIA [None]
  - CONVULSION [None]
  - HYPERCOAGULATION [None]
  - CONSTIPATION [None]
  - DRY SKIN [None]
  - MITRAL VALVE INCOMPETENCE [None]
